FAERS Safety Report 24133966 (Version 1)
Quarter: 2024Q3

REPORT INFORMATION
  Report Type: Spontaneous
  Country: ZA (occurrence: None)
  Receive Date: 20240724
  Receipt Date: 20240724
  Transmission Date: 20241016
  Serious: Yes (Hospitalization, Other)
  Sender: ASTRAZENECA
  Company Number: 2024A164162

PATIENT
  Age: 77 Year
  Sex: Female

DRUGS (10)
  1. DAPAGLIFLOZIN PROPANEDIOL [Suspect]
     Active Substance: DAPAGLIFLOZIN PROPANEDIOL
     Indication: Type 2 diabetes mellitus
     Route: 048
  2. LOSARTAN POTASSIUM [Concomitant]
     Active Substance: LOSARTAN POTASSIUM
     Indication: Hypertension
     Route: 048
  3. LOSARTAN POTASSIUM [Concomitant]
     Active Substance: LOSARTAN POTASSIUM
     Indication: Cardiac disorder
     Route: 048
  4. ACETYLCYSTEINE [Concomitant]
     Active Substance: ACETYLCYSTEINE
     Route: 048
  5. PONAC [Concomitant]
     Route: 048
  6. TRAMAZAC [Concomitant]
     Indication: Pain
     Route: 048
  7. BROMAZEPAM [Concomitant]
     Active Substance: BROMAZEPAM
     Indication: Anxiety
     Route: 048
  8. DIS-CHEM PARACETAMOL [Concomitant]
     Route: 048
  9. CITRIC ACID MONOHYDRATE\SODIUM BICARBONATE\SODIUM CITRATE\TARTARIC ACI [Concomitant]
     Active Substance: CITRIC ACID MONOHYDRATE\SODIUM BICARBONATE\SODIUM CITRATE\TARTARIC ACID
     Route: 048
  10. BIOFORCE NEPHROSOLID [Concomitant]
     Route: 048

REACTIONS (4)
  - Intervertebral disc disorder [Unknown]
  - Accident [Unknown]
  - Hypoacusis [Unknown]
  - Gastric polyps [Unknown]
